FAERS Safety Report 6818016-4 (Version None)
Quarter: 2010Q3

REPORT INFORMATION
  Report Type: 
  Country: None (occurrence: None)
  Receive Date: 20100706
  Receipt Date: 20100624
  Transmission Date: 20110219
  Serious: Yes (Other)
  Sender: FDA-Public Use
  Company Number: US-WYE-H15894110

PATIENT
  Sex: Female
  Weight: 70.37 kg

DRUGS (2)
  1. PREMPRO [Suspect]
     Indication: MENOPAUSAL SYMPTOMS
     Route: 048
     Dates: end: 20091201
  2. VITAMINS [Concomitant]

REACTIONS (5)
  - ALOPECIA [None]
  - MENOPAUSAL SYMPTOMS [None]
  - MUSCLE SPASMS [None]
  - NASOPHARYNGITIS [None]
  - VIITH NERVE PARALYSIS [None]
